FAERS Safety Report 7818376-1 (Version None)
Quarter: 2011Q4

REPORT INFORMATION
  Report Type: 
  Country: None (occurrence: None)
  Receive Date: 20111017
  Receipt Date: 20111012
  Transmission Date: 20120403
  Serious: Yes (Hospitalization)
  Sender: FDA-Public Use
  Company Number: CZ-AMGEN-CZESP2011052656

PATIENT
  Sex: Male

DRUGS (1)
  1. NEULASTA [Suspect]
     Indication: PRODUCT USED FOR UNKNOWN INDICATION
     Dosage: UNK
     Dates: start: 20111009

REACTIONS (5)
  - ANXIETY [None]
  - DYSPNOEA [None]
  - OEDEMA MUCOSAL [None]
  - VISUAL IMPAIRMENT [None]
  - RASH [None]
